FAERS Safety Report 6247713-7 (Version None)
Quarter: 2009Q2

REPORT INFORMATION
  Report Type: 
  Country: None (occurrence: None)
  Receive Date: 20090626
  Receipt Date: 20090616
  Transmission Date: 20091009
  Serious: Yes (Other)
  Sender: FDA-Public Use
  Company Number: PHHY2009AU24134

PATIENT

DRUGS (2)
  1. NEORAL [Suspect]
     Dosage: UNK
  2. NEORAL [Suspect]
     Dosage: UNK
     Route: 048

REACTIONS (1)
  - PULMONARY HAEMORRHAGE [None]
